FAERS Safety Report 11822939 (Version 5)
Quarter: 2020Q1

REPORT INFORMATION
  Report Type: Report from Study
  Country: PH (occurrence: PH)
  Receive Date: 20151210
  Receipt Date: 20200218
  Transmission Date: 20200409
  Serious: Yes (Death, Hospitalization, Other)
  Sender: FDA-Public Use
  Company Number: PHHO2013PH020419

PATIENT
  Age: 62 Year
  Sex: Female
  Weight: 40 kg

DRUGS (2)
  1. TRASTUZUMAB. [Suspect]
     Active Substance: TRASTUZUMAB
     Indication: BREAST CANCER
     Dosage: CYCLIC
     Route: 042
     Dates: start: 20120109, end: 20120423
  2. LAPATINIB DITOSYLATE [Suspect]
     Active Substance: LAPATINIB DITOSYLATE
     Indication: BREAST CANCER
     Dosage: 1500 MG, QD (FOR 52 WEEKS)
     Route: 048
     Dates: start: 20080411, end: 20090223

REACTIONS (3)
  - Cardiac failure congestive [Recovered/Resolved]
  - Pneumonia [Fatal]
  - Cardiac failure congestive [Not Recovered/Not Resolved]

NARRATIVE: CASE EVENT DATE: 20120806
